FAERS Safety Report 5395121-3 (Version None)
Quarter: 2007Q3

REPORT INFORMATION
  Report Type: 
  Country: None (occurrence: None)
  Receive Date: 20070724
  Receipt Date: 20070718
  Transmission Date: 20080115
  Serious: Yes (Death)
  Sender: FDA-Public Use
  Company Number: IE-JNJFOC-20070703958

PATIENT
  Age: 74 Year
  Sex: Male

DRUGS (1)
  1. SPORANOX [Suspect]
     Indication: CHRONIC OBSTRUCTIVE PULMONARY DISEASE
     Route: 048

REACTIONS (7)
  - DRUG PRESCRIBING ERROR [None]
  - FATIGUE [None]
  - GASTRIC CANCER [None]
  - HEPATIC NEOPLASM MALIGNANT [None]
  - OVERDOSE [None]
  - SWELLING FACE [None]
  - TREMOR [None]
